FAERS Safety Report 14677207 (Version 1)
Quarter: 2018Q1

REPORT INFORMATION
  Report Type: Spontaneous
  Country: US (occurrence: US)
  Receive Date: 20180323
  Receipt Date: 20180323
  Transmission Date: 20180509
  Serious: Yes (Hospitalization)
  Sender: FDA-Public Use
  Company Number: None

PATIENT
  Sex: Female

DRUGS (5)
  1. AMLODIPINE/OLMESARTAN 5/20 [Concomitant]
  2. GABAPENTIN 100MG [Concomitant]
     Active Substance: GABAPENTIN
  3. ADVAIR 25/50 [Concomitant]
  4. LEVOTHYROXINE 50MCG [Concomitant]
     Active Substance: LEVOTHYROXINE
  5. XELJANZ XR [Suspect]
     Active Substance: TOFACITINIB CITRATE
     Indication: RHEUMATOID ARTHRITIS
     Route: 048
     Dates: start: 20180126

REACTIONS (3)
  - Fall [None]
  - Joint swelling [None]
  - Femur fracture [None]
